FAERS Safety Report 8559193-7 (Version None)
Quarter: 2012Q3

REPORT INFORMATION
  Report Type: 
  Country: None (occurrence: None)
  Receive Date: 20120720
  Receipt Date: 20120710
  Transmission Date: 20120928
  Serious: Yes (Other)
  Sender: FDA-Public Use
  Company Number: DSA_58498_2012

PATIENT
  Sex: Female

DRUGS (5)
  1. CELEXA [Concomitant]
  2. ORAL CONTRACEPTIVE NOS [Concomitant]
  3. BUPROPION HYDROCHLORIDE [Suspect]
     Indication: DEPRESSION
     Dosage: (125 MG, DAILY ORAL), (100 MG, DAILY), (75 MG, DAILY)
     Route: 048
     Dates: end: 20120501
  4. BUPROPION HYDROCHLORIDE [Suspect]
     Indication: DEPRESSION
     Dosage: (125 MG, DAILY ORAL), (100 MG, DAILY), (75 MG, DAILY)
     Route: 048
     Dates: start: 20090101
  5. CORTICOSTEROID NOS [Concomitant]

REACTIONS (9)
  - RASH [None]
  - EATING DISORDER SYMPTOM [None]
  - HYPERHIDROSIS [None]
  - NAUSEA [None]
  - RETCHING [None]
  - VOMITING [None]
  - DIARRHOEA [None]
  - HERPES ZOSTER [None]
  - VIITH NERVE PARALYSIS [None]
